FAERS Safety Report 6663359-0 (Version None)
Quarter: 2010Q1

REPORT INFORMATION
  Report Type: 
  Country: None (occurrence: None)
  Receive Date: 20100331
  Receipt Date: 20100331
  Transmission Date: 20100710
  Serious: Yes (Other)
  Sender: FDA-Public Use
  Company Number: None

PATIENT
  Age: 5 Year
  Sex: Female

DRUGS (1)
  1. TRILEPTAL [Suspect]
     Indication: CONVULSION
     Dosage: 5ML TWICE DAILY PO
     Route: 048
     Dates: start: 20100315, end: 20100330

REACTIONS (4)
  - CONVULSION [None]
  - PRODUCT COLOUR ISSUE [None]
  - PRODUCT CONTAMINATION [None]
  - PRODUCT ODOUR ABNORMAL [None]
